FAERS Safety Report 16292191 (Version 12)
Quarter: 2020Q1

REPORT INFORMATION
  Report Type: Report from Study
  Country: JP (occurrence: JP)
  Receive Date: 20190509
  Receipt Date: 20200117
  Transmission Date: 20200409
  Serious: Yes (Life-Threatening, Hospitalization)
  Sender: FDA-Public Use
  Company Number: JP-CELGENEUS-JPN-20190502458

PATIENT
  Age: 70 Year
  Sex: Male
  Weight: 41 kg

DRUGS (156)
  1. DEXAMETHASONE. [Suspect]
     Active Substance: DEXAMETHASONE
     Indication: PLASMA CELL MYELOMA
     Route: 048
     Dates: start: 20190419, end: 20190430
  2. DARATUMUMAB [Concomitant]
     Active Substance: DARATUMUMAB
     Indication: PLASMA CELL MYELOMA
     Route: 058
     Dates: start: 20190419, end: 20190531
  3. FUROSEMIDE. [Concomitant]
     Active Substance: FUROSEMIDE
     Dosage: 60 MILLIGRAM
     Route: 041
     Dates: start: 20190408, end: 20190408
  4. NITROGLYCERIN. [Concomitant]
     Active Substance: NITROGLYCERIN
     Route: 041
     Dates: start: 20190409, end: 20190409
  5. GLUCOSE [Concomitant]
     Active Substance: DEXTROSE
     Indication: HYPOGLYCAEMIA
     Dosage: 40 GRAM
     Route: 041
     Dates: start: 20190509, end: 20190509
  6. KENKETSU ALBUMIN [Concomitant]
     Indication: HYPOALBUMINAEMIA
     Dosage: 20 MILLILITER
     Route: 041
     Dates: start: 20190506, end: 20190507
  7. AMLODIPINE [Concomitant]
     Active Substance: AMLODIPINE BESYLATE
     Indication: TRANSFUSION-RELATED CIRCULATORY OVERLOAD
     Dosage: 2.5 MILLIGRAM
     Route: 048
     Dates: start: 20190413, end: 20190414
  8. AZUNOL [Concomitant]
     Indication: INFECTION PROPHYLAXIS
     Dosage: UNKNOWN
     Route: 061
     Dates: start: 20190415
  9. HUMULIN R [Concomitant]
     Active Substance: INSULIN HUMAN
     Indication: HYPERGLYCAEMIA
     Route: 041
     Dates: start: 20190406, end: 20190406
  10. HUMULIN R [Concomitant]
     Active Substance: INSULIN HUMAN
     Route: 058
     Dates: start: 20190412, end: 20190412
  11. HUMULIN R [Concomitant]
     Active Substance: INSULIN HUMAN
     Route: 058
     Dates: start: 20190413, end: 20190413
  12. HUMULIN R [Concomitant]
     Active Substance: INSULIN HUMAN
     Route: 058
     Dates: start: 20190501, end: 20190501
  13. HUMULIN R [Concomitant]
     Active Substance: INSULIN HUMAN
     Route: 058
     Dates: start: 20190505, end: 20190505
  14. HUMULIN R [Concomitant]
     Active Substance: INSULIN HUMAN
     Route: 058
     Dates: start: 20190514, end: 20190514
  15. HUMULIN R [Concomitant]
     Active Substance: INSULIN HUMAN
     Route: 058
     Dates: start: 20190528, end: 20190528
  16. LANSOPRAZOLE. [Concomitant]
     Active Substance: LANSOPRAZOLE
     Indication: PROPHYLAXIS AGAINST GASTROINTESTINAL ULCER
     Dosage: 15 MILLIGRAM
     Route: 048
     Dates: start: 20190511
  17. FENTANYL. [Concomitant]
     Active Substance: FENTANYL
     Dosage: 0.15 MILLIGRAM
     Route: 041
     Dates: start: 20190510, end: 20190510
  18. FUNGIZONE [Concomitant]
     Active Substance: AMPHOTERICIN B
     Indication: ANTIFUNGAL PROPHYLAXIS
     Dosage: UNKNOWN
     Route: 061
     Dates: start: 20190529
  19. ZINC OXIDE. [Concomitant]
     Active Substance: ZINC OXIDE
     Indication: DRY SKIN PROPHYLAXIS
     Dosage: UNKNOWN
     Route: 061
     Dates: start: 20190510
  20. PRECEDEX [Concomitant]
     Active Substance: DEXMEDETOMIDINE HYDROCHLORIDE
     Dosage: 192 MICROGRAM
     Route: 041
     Dates: start: 20190507, end: 20190507
  21. NOR-ADRENALIN [Concomitant]
     Dosage: 2.79 MILLIGRAM
     Route: 041
     Dates: start: 20190507, end: 20190507
  22. LYRICA [Concomitant]
     Active Substance: PREGABALIN
     Dosage: 100 MILLIGRAM
     Route: 048
     Dates: start: 20190424, end: 20190430
  23. TRIMETHOPRIM SULFAMETHOXAZOLE [Concomitant]
     Active Substance: SULFAMETHOXAZOLE\TRIMETHOPRIM
     Indication: INFECTION PROPHYLAXIS
     Dosage: 0.5 MILLIGRAM
     Route: 048
     Dates: start: 20190405
  24. FUROSEMIDE. [Concomitant]
     Active Substance: FUROSEMIDE
     Indication: CARDIOVASCULAR EVENT PROPHYLAXIS
     Route: 041
     Dates: start: 20190405, end: 20190405
  25. KN NO.1 [Concomitant]
     Indication: FLUID REPLACEMENT
     Dosage: 1000 MILLILITER
     Route: 041
     Dates: start: 20190407, end: 20190408
  26. LACTEC [Concomitant]
     Active Substance: CALCIUM CHLORIDE ANHYDROUS\POTASSIUM CHLORIDE\SODIUM CHLORIDE\SODIUM LACTATE
     Route: 041
     Dates: start: 20190413, end: 20190413
  27. UBIDECARENONE [Concomitant]
     Active Substance: UBIDECARENONE
     Indication: CARDIOVASCULAR EVENT PROPHYLAXIS
     Dosage: 30 MILLIGRAM
     Route: 048
     Dates: start: 20190410, end: 20190423
  28. AMLODIPINE [Concomitant]
     Active Substance: AMLODIPINE BESYLATE
     Dosage: 5 MILLIGRAM
     Route: 048
     Dates: start: 20190426, end: 20190504
  29. HUMULIN R [Concomitant]
     Active Substance: INSULIN HUMAN
     Route: 041
     Dates: start: 20190507, end: 20190508
  30. HUMULIN R [Concomitant]
     Active Substance: INSULIN HUMAN
     Route: 041
     Dates: start: 20190510, end: 20190510
  31. HUMULIN R [Concomitant]
     Active Substance: INSULIN HUMAN
     Route: 041
     Dates: start: 20190518, end: 20190518
  32. HUMULIN R [Concomitant]
     Active Substance: INSULIN HUMAN
     Route: 058
     Dates: start: 20190519, end: 20190519
  33. HUMULIN R [Concomitant]
     Active Substance: INSULIN HUMAN
     Route: 041
     Dates: start: 20190520, end: 20190526
  34. MIDAZOLAM HYDROCHLORIDE. [Concomitant]
     Active Substance: MIDAZOLAM HYDROCHLORIDE
     Indication: SEDATION
     Route: 041
     Dates: start: 20190505, end: 20190505
  35. CALCIUM LACTATE HYDRATE [Concomitant]
     Active Substance: CALCIUM LACTATE
     Indication: HYPOCALCAEMIA
     Dosage: 3 GRAM
     Route: 048
     Dates: start: 20190422, end: 20190527
  36. BFLUID [Concomitant]
     Active Substance: AMINO ACIDS\DEXTROSE\ELECTROLYTES NOS\VITAMINS
     Dosage: 1000 MILLILITER
     Route: 041
     Dates: start: 20190505, end: 20190505
  37. SODIUM CHLORIDE. [Concomitant]
     Active Substance: SODIUM CHLORIDE
     Indication: FLUID REPLACEMENT
     Route: 041
     Dates: start: 20190426, end: 20190430
  38. FENTANYL. [Concomitant]
     Active Substance: FENTANYL
     Dosage: 0.12 MILLIGRAM
     Route: 041
     Dates: start: 20190508, end: 20190509
  39. NOR-ADRENALIN [Concomitant]
     Dosage: 6.58 MILLIGRAM
     Route: 041
     Dates: start: 20190506, end: 20190506
  40. TRAMAL [Concomitant]
     Active Substance: TRAMADOL
     Dosage: 200 MILLIGRAM
     Route: 048
     Dates: start: 20190406, end: 20190410
  41. LYRICA [Concomitant]
     Active Substance: PREGABALIN
     Dosage: 50 MILLIGRAM
     Route: 048
     Dates: start: 20190501, end: 20190503
  42. SODIUM RABEPRAZOLE [Concomitant]
     Active Substance: RABEPRAZOLE SODIUM
     Indication: PROPHYLAXIS AGAINST GASTROINTESTINAL ULCER
     Dosage: 10 MILLIGRAM
     Route: 048
     Dates: start: 20190405, end: 20190505
  43. FUROSEMIDE. [Concomitant]
     Active Substance: FUROSEMIDE
     Route: 041
     Dates: start: 20190505, end: 20190505
  44. KN NO.1 [Concomitant]
     Route: 041
     Dates: start: 20190423, end: 20190423
  45. KN NO.1 [Concomitant]
     Route: 041
     Dates: start: 20190424, end: 20190425
  46. KN NO.1 [Concomitant]
     Route: 041
     Dates: start: 20190426, end: 20190426
  47. LACTEC [Concomitant]
     Active Substance: CALCIUM CHLORIDE ANHYDROUS\POTASSIUM CHLORIDE\SODIUM CHLORIDE\SODIUM LACTATE
     Route: 041
     Dates: start: 20190412, end: 20190412
  48. FLUCONAZOLE. [Concomitant]
     Active Substance: FLUCONAZOLE
     Indication: ANTIFUNGAL PROPHYLAXIS
     Dosage: 100 MILLIGRAM
     Route: 048
     Dates: start: 20190409
  49. AMLODIPINE [Concomitant]
     Active Substance: AMLODIPINE BESYLATE
     Indication: HYPERTENSION
     Dosage: 2.5 MILLIGRAM
     Route: 048
     Dates: start: 20190415, end: 201904
  50. HUMULIN R [Concomitant]
     Active Substance: INSULIN HUMAN
     Route: 058
     Dates: start: 20190414, end: 20190414
  51. HUMULIN R [Concomitant]
     Active Substance: INSULIN HUMAN
     Route: 058
     Dates: start: 20190414, end: 20190414
  52. HUMULIN R [Concomitant]
     Active Substance: INSULIN HUMAN
     Route: 041
     Dates: start: 20190509, end: 20190509
  53. HUMULIN R [Concomitant]
     Active Substance: INSULIN HUMAN
     Route: 041
     Dates: start: 20190513, end: 20190517
  54. HUMULIN R [Concomitant]
     Active Substance: INSULIN HUMAN
     Route: 058
     Dates: start: 20190515, end: 20190518
  55. HUMULIN R [Concomitant]
     Active Substance: INSULIN HUMAN
     Route: 058
     Dates: start: 20190520, end: 20190520
  56. HUMULIN R [Concomitant]
     Active Substance: INSULIN HUMAN
     Route: 058
     Dates: start: 20190524, end: 20190524
  57. BFLUID [Concomitant]
     Active Substance: AMINO ACIDS\DEXTROSE\ELECTROLYTES NOS\VITAMINS
     Dosage: 500 MILLILITER
     Route: 041
     Dates: start: 20190501, end: 20190504
  58. PANTOL [Concomitant]
     Active Substance: DEXPANTHENOL
     Indication: CONSTIPATION
     Dosage: 1500 MILLIGRAM
     Route: 041
     Dates: start: 20190507, end: 20190509
  59. FENTANYL. [Concomitant]
     Active Substance: FENTANYL
     Indication: TRACHEAL PAIN
     Dosage: 0.24 MILLIGRAM
     Route: 041
     Dates: start: 20190506, end: 20190506
  60. TRAMAL [Concomitant]
     Active Substance: TRAMADOL
     Route: 048
     Dates: start: 20190405, end: 20190405
  61. FUROSEMIDE. [Concomitant]
     Active Substance: FUROSEMIDE
     Indication: PULMONARY OEDEMA
     Dosage: 40 MILLIGRAM
     Route: 041
     Dates: start: 20190406, end: 20190407
  62. LACTEC [Concomitant]
     Active Substance: CALCIUM CHLORIDE ANHYDROUS\POTASSIUM CHLORIDE\SODIUM CHLORIDE\SODIUM LACTATE
     Route: 041
     Dates: start: 20190429, end: 20190429
  63. LACTEC [Concomitant]
     Active Substance: CALCIUM CHLORIDE ANHYDROUS\POTASSIUM CHLORIDE\SODIUM CHLORIDE\SODIUM LACTATE
     Route: 041
     Dates: start: 20190430, end: 20190501
  64. TELEMINSOFT [Concomitant]
     Active Substance: BISACODYL
     Indication: CONSTIPATION
     Route: 061
     Dates: start: 20190414
  65. HUMULIN R [Concomitant]
     Active Substance: INSULIN HUMAN
     Route: 058
     Dates: start: 20190411, end: 20190411
  66. HUMULIN R [Concomitant]
     Active Substance: INSULIN HUMAN
     Route: 041
     Dates: start: 20190519, end: 20190519
  67. HUMULIN R [Concomitant]
     Active Substance: INSULIN HUMAN
     Route: 058
     Dates: start: 20190521, end: 20190522
  68. HUMULIN R [Concomitant]
     Active Substance: INSULIN HUMAN
     Route: 058
     Dates: start: 20190529, end: 20190529
  69. XYLOCAINE [Concomitant]
     Active Substance: LIDOCAINE HYDROCHLORIDE
     Indication: ASPIRATION BONE MARROW
     Dosage: UNKNOWN
     Route: 061
     Dates: start: 20190408, end: 20190409
  70. ISONIAZID. [Concomitant]
     Active Substance: ISONIAZID
     Indication: ANTIBIOTIC PROPHYLAXIS
     Dosage: 200 MILLIGRAM
     Route: 048
     Dates: start: 20190410
  71. SODIUM CHLORIDE. [Concomitant]
     Active Substance: SODIUM CHLORIDE
     Indication: ELECTROLYTE SUBSTITUTION THERAPY
     Route: 041
     Dates: start: 20190501, end: 20190504
  72. ANFLAVATE [Concomitant]
     Active Substance: BETAMETHASONE BUTYRATE PROPIONATE
     Indication: DRUG ERUPTION
     Dosage: UNKNOWN
     Route: 061
     Dates: start: 20190523, end: 20190530
  73. ELNEOPA-NF NO.1 [Concomitant]
     Indication: FLUID REPLACEMENT
     Dosage: 1000 MILLILITER
     Route: 041
     Dates: start: 20190506, end: 20190506
  74. PRECEDEX [Concomitant]
     Active Substance: DEXMEDETOMIDINE HYDROCHLORIDE
     Dosage: 256 MICROGRAM
     Route: 041
     Dates: start: 20190509, end: 20190509
  75. TRAMAL [Concomitant]
     Active Substance: TRAMADOL
     Indication: SPINAL COMPRESSION FRACTURE
     Dosage: 100 MILLIGRAM
     Route: 048
     Dates: start: 20190404, end: 20190405
  76. CALONAL [Concomitant]
     Active Substance: ACETAMINOPHEN
     Indication: SPINAL COMPRESSION FRACTURE
     Dosage: 1500 MILLIGRAM
     Route: 048
     Dates: start: 20190404, end: 20190410
  77. FEBURIC [Concomitant]
     Active Substance: FEBUXOSTAT
     Indication: HYPERURICAEMIA
     Dosage: 40 MILLIGRAM
     Route: 048
     Dates: start: 20190405, end: 20190423
  78. RANMARK [Concomitant]
     Active Substance: DENOSUMAB
     Indication: PLASMA CELL MYELOMA
     Route: 058
     Dates: start: 20190404, end: 20190404
  79. KENKETSU ALBUMIN [Concomitant]
     Indication: TRANSFUSION-RELATED CIRCULATORY OVERLOAD
     Dosage: 100 MILLILITER
     Route: 041
     Dates: start: 20190410, end: 20190411
  80. LACTEC [Concomitant]
     Active Substance: CALCIUM CHLORIDE ANHYDROUS\POTASSIUM CHLORIDE\SODIUM CHLORIDE\SODIUM LACTATE
     Indication: FLUID REPLACEMENT
     Route: 041
     Dates: start: 20190411, end: 20190411
  81. HUMULIN R [Concomitant]
     Active Substance: INSULIN HUMAN
     Route: 058
     Dates: start: 20190506, end: 20190508
  82. CARBAZOCHROME SODIUM SULFONATE [Concomitant]
     Active Substance: CARBAZOCHROME SODIUM SULFONATE
     Indication: UPPER GASTROINTESTINAL HAEMORRHAGE
     Dosage: 50 MILLIGRAM
     Route: 041
     Dates: start: 20190504, end: 20190505
  83. AMBROXOL [Concomitant]
     Active Substance: AMBROXOL
     Indication: PNEUMONIA
     Dosage: 45 MILLIGRAM
     Route: 048
     Dates: start: 20190509
  84. MEPTIN [Concomitant]
     Active Substance: PROCATEROL HYDROCHLORIDE
     Indication: SPUTUM RETENTION
     Dosage: UNKNOWN
     Route: 061
     Dates: start: 20190412, end: 20190426
  85. BFLUID [Concomitant]
     Active Substance: AMINO ACIDS\DEXTROSE\ELECTROLYTES NOS\VITAMINS
     Dosage: 1000 MILLILITER
     Route: 041
     Dates: start: 20190528
  86. FEXOFENADINE HYDROCHLORIDE. [Concomitant]
     Active Substance: FEXOFENADINE HYDROCHLORIDE
     Indication: PROPHYLAXIS
     Route: 048
     Dates: start: 20190419
  87. CARBOCISTEINE [Concomitant]
     Active Substance: CARBOCYSTEINE
     Indication: SPUTUM RETENTION
     Dosage: 1500 MILLIGRAM
     Route: 048
     Dates: start: 20190515
  88. OMEPRAZOLE. [Concomitant]
     Active Substance: OMEPRAZOLE
     Indication: UPPER GASTROINTESTINAL HAEMORRHAGE
     Dosage: 40 MILLIGRAM
     Route: 041
     Dates: start: 20190506, end: 20190509
  89. KCL [Concomitant]
     Active Substance: POTASSIUM CHLORIDE
     Indication: FLUID REPLACEMENT
     Dosage: 5 MILLILITER
     Route: 041
     Dates: start: 20190505, end: 20190505
  90. FENTANYL. [Concomitant]
     Active Substance: FENTANYL
     Indication: ENDOTRACHEAL INTUBATION
     Dosage: 0.16 MILLIGRAM
     Route: 041
     Dates: start: 20190507, end: 20190507
  91. FENTANYL. [Concomitant]
     Active Substance: FENTANYL
     Dosage: 0.2 MILLIGRAM
     Route: 041
     Dates: start: 20190510, end: 20190510
  92. PRECEDEX [Concomitant]
     Active Substance: DEXMEDETOMIDINE HYDROCHLORIDE
     Indication: ENDOTRACHEAL INTUBATION
     Dosage: 8 MICROGRAM
     Route: 041
     Dates: start: 20190505, end: 20190505
  93. PRECEDEX [Concomitant]
     Active Substance: DEXMEDETOMIDINE HYDROCHLORIDE
     Dosage: 203 MICROGRAM
     Route: 041
     Dates: start: 20190508, end: 20190508
  94. TRAMAL [Concomitant]
     Active Substance: TRAMADOL
     Dosage: 50 MILLIGRAM
     Route: 048
     Dates: start: 20190529
  95. SENNOSIDE [Concomitant]
     Active Substance: SENNOSIDES
     Indication: CONSTIPATION
     Route: 048
     Dates: start: 20190407, end: 20190424
  96. GLUCOSE [Concomitant]
     Active Substance: DEXTROSE
     Indication: FLUID REPLACEMENT
     Dosage: 250 MILLILITER
     Route: 041
     Dates: start: 20190409, end: 20190411
  97. LACTEC [Concomitant]
     Active Substance: CALCIUM CHLORIDE ANHYDROUS\POTASSIUM CHLORIDE\SODIUM CHLORIDE\SODIUM LACTATE
     Route: 041
     Dates: start: 20190502, end: 20190502
  98. NEUROVITAN [Concomitant]
     Active Substance: VITAMINS
     Indication: VITAMIN B12 DEFICIENCY
     Dosage: 3 TABLET
     Route: 048
     Dates: start: 20190410, end: 20190423
  99. HUMULIN R [Concomitant]
     Active Substance: INSULIN HUMAN
     Route: 041
     Dates: start: 20190501, end: 20190504
  100. GENINAX [Concomitant]
     Active Substance: GARENOXACIN MESYLATE
     Indication: INFECTION PROPHYLAXIS
     Dosage: 400 MICROGRAM
     Route: 048
     Dates: start: 20190419, end: 20190502
  101. TRANEXAMIC ACID. [Concomitant]
     Active Substance: TRANEXAMIC ACID
     Indication: UPPER GASTROINTESTINAL HAEMORRHAGE
     Dosage: 1 GRAM
     Route: 041
     Dates: start: 20190504, end: 20190505
  102. ALFACALCIDOL [Concomitant]
     Active Substance: ALFACALCIDOL
     Indication: HYPOCALCAEMIA
     Dosage: 0.75 MICROGRAM
     Route: 048
     Dates: start: 20190423, end: 20190529
  103. HEPARINOID [Concomitant]
     Active Substance: CHONDROITIN SULFATE (BOVINE)
     Indication: DRY SKIN PROPHYLAXIS
     Dosage: UNKNOWN
     Route: 061
     Dates: start: 20190422
  104. AMBROXOL [Concomitant]
     Active Substance: AMBROXOL
     Indication: SPUTUM RETENTION
     Dosage: 45 MILLIGRAM
     Route: 048
     Dates: start: 20190423, end: 20190504
  105. KCL [Concomitant]
     Active Substance: POTASSIUM CHLORIDE
     Dosage: 20 MILLILITER
     Route: 041
     Dates: start: 20190506, end: 20190526
  106. ELNEOPA NF NO.2 [Concomitant]
     Indication: FLUID REPLACEMENT
     Dosage: 1000 MILLILITER
     Route: 041
     Dates: start: 20190507, end: 20190526
  107. ULITIVA [Concomitant]
     Indication: GENERAL ANAESTHESIA
     Dosage: 2 MILLIGRAM
     Route: 041
     Dates: start: 20190510, end: 20190510
  108. FENTANYL. [Concomitant]
     Active Substance: FENTANYL
     Dosage: 0.12 MILLIGRAM
     Route: 041
     Dates: start: 20190511, end: 20190513
  109. PRECEDEX [Concomitant]
     Active Substance: DEXMEDETOMIDINE HYDROCHLORIDE
     Dosage: 297.88 MICROGRAM
     Route: 041
     Dates: start: 20190506, end: 20190506
  110. PRECEDEX [Concomitant]
     Active Substance: DEXMEDETOMIDINE HYDROCHLORIDE
     Dosage: 168 MICROGRAM
     Route: 041
     Dates: start: 20190512, end: 20190512
  111. NOR-ADRENALIN [Concomitant]
     Indication: ENDOTRACHEAL INTUBATION
     Dosage: 0.1 MILLIGRAM
     Route: 041
     Dates: start: 20190505, end: 20190505
  112. PICOSULFATE [Concomitant]
     Active Substance: SODIUM PICOSULFATE
     Indication: CONSTIPATION
     Dosage: UNKNOWN
     Route: 048
     Dates: start: 20190424
  113. BROTIZOLAM [Concomitant]
     Active Substance: BROTIZOLAM
     Indication: INSOMNIA
     Route: 048
     Dates: start: 20190601, end: 20190601
  114. CC-5013 [Suspect]
     Active Substance: LENALIDOMIDE
     Indication: PLASMA CELL MYELOMA
     Route: 048
     Dates: start: 20190419, end: 20190531
  115. BORTEZOMIB. [Concomitant]
     Active Substance: BORTEZOMIB
     Indication: PLASMA CELL MYELOMA
     Route: 058
     Dates: start: 20190419, end: 20190531
  116. TRAMAL [Concomitant]
     Active Substance: TRAMADOL
     Dosage: 100 MILLIGRAM
     Route: 048
     Dates: start: 20190410, end: 20190424
  117. CALONAL [Concomitant]
     Active Substance: ACETAMINOPHEN
     Indication: PROPHYLAXIS
     Dosage: 600 MILLIGRAM
     Route: 048
     Dates: start: 20190410, end: 20190415
  118. CALONAL [Concomitant]
     Active Substance: ACETAMINOPHEN
     Route: 048
     Dates: start: 20190419
  119. LYRICA [Concomitant]
     Active Substance: PREGABALIN
     Indication: SPINAL COMPRESSION FRACTURE
     Dosage: 150 MILLIGRAM
     Route: 048
     Dates: end: 20190423
  120. SODIUM RABEPRAZOLE [Concomitant]
     Active Substance: RABEPRAZOLE SODIUM
     Dosage: 10 MILLIGRAM
     Route: 048
     Dates: start: 20190510, end: 20190510
  121. FUROSEMIDE. [Concomitant]
     Active Substance: FUROSEMIDE
     Dosage: 40 MILLIGRAM
     Route: 041
     Dates: start: 20190409, end: 20190410
  122. FUROSEMIDE. [Concomitant]
     Active Substance: FUROSEMIDE
     Route: 041
     Dates: start: 20190411, end: 20190411
  123. KN NO.1 [Concomitant]
     Route: 041
     Dates: start: 20190414, end: 20190415
  124. GLUCOSE [Concomitant]
     Active Substance: DEXTROSE
     Dosage: 70 GRAM
     Route: 041
     Dates: start: 20190518, end: 20190518
  125. CEFTAZIDIME. [Concomitant]
     Active Substance: CEFTAZIDIME
     Indication: PNEUMONIA
     Dosage: 2 GRAM
     Route: 041
     Dates: start: 20190409, end: 20190415
  126. LACTEC [Concomitant]
     Active Substance: CALCIUM CHLORIDE ANHYDROUS\POTASSIUM CHLORIDE\SODIUM CHLORIDE\SODIUM LACTATE
     Route: 041
     Dates: start: 20190423, end: 20190423
  127. LACTEC [Concomitant]
     Active Substance: CALCIUM CHLORIDE ANHYDROUS\POTASSIUM CHLORIDE\SODIUM CHLORIDE\SODIUM LACTATE
     Route: 041
     Dates: start: 20190427, end: 20190428
  128. LACTEC [Concomitant]
     Active Substance: CALCIUM CHLORIDE ANHYDROUS\POTASSIUM CHLORIDE\SODIUM CHLORIDE\SODIUM LACTATE
     Route: 041
     Dates: start: 20190505, end: 20190505
  129. MIDAZOLAM HYDROCHLORIDE. [Concomitant]
     Active Substance: MIDAZOLAM HYDROCHLORIDE
     Indication: ENDOTRACHEAL INTUBATION
     Route: 041
     Dates: start: 20190505, end: 20190505
  130. TRAZENTA [Concomitant]
     Active Substance: LINAGLIPTIN
     Indication: HYPERGLYCAEMIA
     Dosage: 5 MILLIGRAM
     Route: 048
     Dates: start: 20190425, end: 20190504
  131. MONTELUKAST [Concomitant]
     Active Substance: MONTELUKAST SODIUM
     Indication: PROPHYLAXIS
     Route: 048
     Dates: start: 20190418, end: 20190418
  132. BFLUID [Concomitant]
     Active Substance: AMINO ACIDS\DEXTROSE\ELECTROLYTES NOS\VITAMINS
     Indication: FLUID REPLACEMENT
     Route: 041
     Dates: start: 20190426, end: 20190430
  133. SODIUM CHLORIDE. [Concomitant]
     Active Substance: SODIUM CHLORIDE
     Route: 041
     Dates: start: 20190505, end: 20190505
  134. RUPAFIN [Concomitant]
     Active Substance: RUPATADINE FUMARATE
     Indication: DRUG ERUPTION
     Dosage: 10 MILLIGRAM
     Route: 048
     Dates: start: 20190523, end: 20190530
  135. METOCLOPRAMIDE. [Concomitant]
     Active Substance: METOCLOPRAMIDE
     Indication: PROPHYLAXIS OF NAUSEA AND VOMITING
     Dosage: 5 MILLIGRAM
     Route: 048
     Dates: start: 20190528
  136. FENTANYL. [Concomitant]
     Active Substance: FENTANYL
     Dosage: 0.07 MILLIGRAM
     Route: 041
     Dates: start: 20190514, end: 20190514
  137. TRAMAL [Concomitant]
     Active Substance: TRAMADOL
     Dosage: 50 MILLIGRAM
     Route: 048
     Dates: start: 20190425, end: 20190503
  138. METHYCOBAL [Concomitant]
     Active Substance: METHYLCOBALAMIN
     Indication: VITAMIN B12 DEFICIENCY
     Dosage: 1500 MICROGRAM
     Route: 048
     Dates: start: 20190405, end: 20190423
  139. KN NO.1 [Concomitant]
     Route: 041
     Dates: start: 20190419, end: 20190422
  140. NITROGLYCERIN. [Concomitant]
     Active Substance: NITROGLYCERIN
     Indication: TRANSFUSION-RELATED CIRCULATORY OVERLOAD
     Route: 041
     Dates: start: 20190408, end: 20190408
  141. GLUCOSE [Concomitant]
     Active Substance: DEXTROSE
     Dosage: 10 GRAM
     Route: 041
     Dates: start: 20190511, end: 20190511
  142. LACTEC [Concomitant]
     Active Substance: CALCIUM CHLORIDE ANHYDROUS\POTASSIUM CHLORIDE\SODIUM CHLORIDE\SODIUM LACTATE
     Route: 041
     Dates: start: 20190503, end: 20190504
  143. ISCOTIN [Concomitant]
     Active Substance: ISONIAZID
     Indication: ANTIBIOTIC PROPHYLAXIS
     Dosage: 200 MILLIGRAM
     Route: 048
     Dates: start: 20190410
  144. HUMULIN R [Concomitant]
     Active Substance: INSULIN HUMAN
     Route: 041
     Dates: start: 20190426, end: 20190430
  145. HUMULIN R [Concomitant]
     Active Substance: INSULIN HUMAN
     Route: 041
     Dates: start: 20190511, end: 20190512
  146. HUMULIN R [Concomitant]
     Active Substance: INSULIN HUMAN
     Route: 058
     Dates: start: 20190512, end: 20190513
  147. BAYASPIRIN [Concomitant]
     Active Substance: ASPIRIN
     Indication: THROMBOSIS PROPHYLAXIS
     Dosage: 100 MILLIGRAM
     Route: 048
     Dates: start: 20190420, end: 20190502
  148. TRAZENTA [Concomitant]
     Active Substance: LINAGLIPTIN
     Dosage: 5 MILLIGRAM
     Route: 048
     Dates: start: 20190514
  149. FILGRASTIM [Concomitant]
     Active Substance: FILGRASTIM
     Indication: FEBRILE NEUTROPENIA
     Dosage: 75 MICROGRAM
     Route: 058
     Dates: start: 20190508, end: 20190513
  150. PROPETO [Concomitant]
     Active Substance: PETROLATUM
     Indication: DRY SKIN PROPHYLAXIS
     Dosage: UNKNOWN
     Route: 061
     Dates: start: 20190422
  151. BELSOMRA [Concomitant]
     Active Substance: SUVOREXANT
     Indication: INSOMNIA
     Dosage: 15 MILLIGRAM
     Route: 048
     Dates: start: 20190512
  152. NEO-SYNESIN KOWA [Concomitant]
     Indication: ENDOTRACHEAL INTUBATION
     Dosage: 0.2 MILLIGRAM
     Route: 041
     Dates: start: 20190505, end: 20190505
  153. ELNEOPA-NF NO.1 [Concomitant]
     Dosage: 1000 MILLILITER
     Route: 041
     Dates: start: 20190527, end: 20190527
  154. PANTOL [Concomitant]
     Active Substance: DEXPANTHENOL
     Dosage: 1000 MILLIGRAM
     Route: 041
     Dates: start: 20190510, end: 20190519
  155. PRECEDEX [Concomitant]
     Active Substance: DEXMEDETOMIDINE HYDROCHLORIDE
     Dosage: 220.4 MICROGRAM
     Route: 041
     Dates: start: 20190510, end: 20190510
  156. PRECEDEX [Concomitant]
     Active Substance: DEXMEDETOMIDINE HYDROCHLORIDE
     Dosage: 125.24 MICROGRAM
     Route: 041
     Dates: start: 20190511, end: 20190511

REACTIONS (1)
  - Pneumonia [Recovered/Resolved]

NARRATIVE: CASE EVENT DATE: 20190505
